FAERS Safety Report 24640959 (Version 1)
Quarter: 2024Q4

REPORT INFORMATION
  Report Type: Report from Study
  Country: ES (occurrence: ES)
  Receive Date: 20241120
  Receipt Date: 20241120
  Transmission Date: 20250115
  Serious: Yes (Other)
  Sender: Y-MABS THERAPEUTICS
  Company Number: ES-Y-MABS THERAPEUTICS, INC.-COM2021-ES-000460

PATIENT

DRUGS (13)
  1. NAXITAMAB [Suspect]
     Active Substance: NAXITAMAB
     Indication: Neuroblastoma
     Dosage: 3.0 MG/KG, CYCLE 1, DOSE 1
     Dates: start: 20210614, end: 20210614
  2. NAXITAMAB [Suspect]
     Active Substance: NAXITAMAB
     Dosage: 3.0 MG/KG, CYCLE 2, DOSE 1
     Dates: start: 20210712, end: 20210712
  3. NAXITAMAB [Suspect]
     Active Substance: NAXITAMAB
     Dosage: 3 MG/KG, CYCLE 2, DOSE 2
     Dates: start: 20210715, end: 20210715
  4. GRANULOCYTE-MACROPHAGE COLONY-STIMULATING FACTOR [Suspect]
     Active Substance: GRANULOCYTE-MACROPHAGE COLONY-STIMULATING FACTOR
     Indication: Neuroblastoma
     Dosage: 500 UG/M2, CYCLE 1, DOSE 1
     Dates: start: 20210614, end: 20210614
  5. GRANULOCYTE-MACROPHAGE COLONY-STIMULATING FACTOR [Suspect]
     Active Substance: GRANULOCYTE-MACROPHAGE COLONY-STIMULATING FACTOR
     Dosage: 500 UG/M2, CYCLE 2, DOSE 1
     Dates: start: 20210712, end: 20210712
  6. GABAPENTIN [Concomitant]
     Active Substance: GABAPENTIN
     Indication: Product used for unknown indication
     Dosage: 1.1 ML, QD
     Dates: start: 20210707, end: 20210707
  7. GABAPENTIN [Concomitant]
     Active Substance: GABAPENTIN
     Dosage: 1.1 ML, TID
     Dates: start: 20210708, end: 20210708
  8. GABAPENTIN [Concomitant]
     Active Substance: GABAPENTIN
     Dosage: 1.1 ML, Q8H
     Route: 048
     Dates: start: 20210708, end: 20210716
  9. GABAPENTIN [Concomitant]
     Active Substance: GABAPENTIN
     Dosage: 1.1 ML, BID
     Route: 048
     Dates: start: 20210717, end: 20210717
  10. GABAPENTIN [Concomitant]
     Active Substance: GABAPENTIN
     Dosage: 1.1 ML, QD
     Route: 048
     Dates: start: 20210718, end: 20210718
  11. SULFAMETHOXAZOLE\TRIMETHOPRIM [Concomitant]
     Active Substance: SULFAMETHOXAZOLE\TRIMETHOPRIM
     Indication: Product used for unknown indication
     Dosage: 3.7 ML, Q12H
  12. omega 3 BrudyNEN emulsion [Concomitant]
     Indication: Product used for unknown indication
     Dosage: UNK, BID
  13. PROBIOTICS NOS [Concomitant]
     Active Substance: PROBIOTICS NOS
     Indication: Product used for unknown indication
     Dosage: 9 DROPS, Q24H

REACTIONS (1)
  - Apnoea [Recovered/Resolved]

NARRATIVE: CASE EVENT DATE: 20210712
